FAERS Safety Report 5927533-0 (Version None)
Quarter: 2008Q4

REPORT INFORMATION
  Report Type: 
  Country: None (occurrence: None)
  Receive Date: 20081021
  Receipt Date: 20081021
  Transmission Date: 20090506
  Serious: Yes (Hospitalization)
  Sender: FDA-Public Use
  Company Number: None

PATIENT
  Age: 81 Year
  Sex: Male
  Weight: 78 kg

DRUGS (7)
  1. LINEZOLID [Suspect]
     Indication: STAPHYLOCOCCAL INFECTION
     Dosage: 600 MG DAILY PO, PRIOR TO ADMISSION
     Route: 048
  2. ATENOLOL [Concomitant]
  3. OMEPRAZOLE [Concomitant]
  4. ASCORBIC ACID [Concomitant]
  5. ZINC SULFATE [Concomitant]
  6. MULTI-VITAMIN [Concomitant]
  7. NAPROXEN [Concomitant]

REACTIONS (6)
  - NEUTROPENIA [None]
  - PNEUMONIA ASPIRATION [None]
  - SEPSIS [None]
  - SHOCK [None]
  - THROMBOCYTOPENIA [None]
  - URINARY TRACT INFECTION [None]
